FAERS Safety Report 13305444 (Version 1)
Quarter: 2017Q1

REPORT INFORMATION
  Report Type: Spontaneous
  Country: US (occurrence: US)
  Receive Date: 20170308
  Receipt Date: 20170308
  Transmission Date: 20170428
  Serious: No
  Sender: FDA-Public Use
  Company Number: US-BAUSCH-BL-2016-005374

PATIENT
  Sex: Male
  Weight: 16 kg

DRUGS (37)
  1. DESONIDE. [Concomitant]
     Active Substance: DESONIDE
     Indication: PRODUCT USED FOR UNKNOWN INDICATION
     Route: 065
  2. EPINEPHRINE. [Concomitant]
     Active Substance: EPINEPHRINE
     Indication: PRODUCT USED FOR UNKNOWN INDICATION
     Dosage: AS NEEDED
     Route: 065
  3. CREON CAPSULES [Concomitant]
     Indication: GASTROOESOPHAGEAL REFLUX DISEASE
  4. VITAMIN A [Concomitant]
     Active Substance: VITAMIN A
     Indication: PRODUCT USED FOR UNKNOWN INDICATION
     Route: 065
  5. TRIAMCINOLONE OINTMENT [Concomitant]
     Indication: PRODUCT USED FOR UNKNOWN INDICATION
     Route: 065
  6. DESONIDE. [Concomitant]
     Active Substance: DESONIDE
     Indication: GASTROOESOPHAGEAL REFLUX DISEASE
  7. SIROLIMUS. [Concomitant]
     Active Substance: SIROLIMUS
     Indication: PRODUCT USED FOR UNKNOWN INDICATION
     Route: 065
  8. ALBUTEROL. [Concomitant]
     Active Substance: ALBUTEROL
     Indication: GASTROOESOPHAGEAL REFLUX DISEASE
  9. FLUOCINOLONE TOPICAL OIL [Concomitant]
     Indication: PRODUCT USED FOR UNKNOWN INDICATION
     Route: 061
  10. LIDOCAINE CREAM [Concomitant]
     Indication: PRODUCT USED FOR UNKNOWN INDICATION
     Route: 061
  11. SULFAMETHOXAZOLE/TRIMETHOPRIM [Concomitant]
     Active Substance: SULFAMETHOXAZOLE\TRIMETHOPRIM
     Indication: PRODUCT USED FOR UNKNOWN INDICATION
     Route: 065
  12. VITAMIN E [Concomitant]
     Active Substance: .ALPHA.-TOCOPHEROL
     Indication: GASTROOESOPHAGEAL REFLUX DISEASE
  13. PREVACID 24 HOURS [Concomitant]
     Indication: GASTROOESOPHAGEAL REFLUX DISEASE
  14. TRIAMCINOLONE OINTMENT [Concomitant]
     Indication: GASTROOESOPHAGEAL REFLUX DISEASE
  15. EPINEPHRINE. [Concomitant]
     Active Substance: EPINEPHRINE
     Indication: GASTROOESOPHAGEAL REFLUX DISEASE
  16. PREDNISONE SOLUTION [Concomitant]
     Indication: PRODUCT USED FOR UNKNOWN INDICATION
     Route: 065
  17. URSODIOL. [Concomitant]
     Active Substance: URSODIOL
     Indication: PRODUCT USED FOR UNKNOWN INDICATION
     Route: 065
  18. UCERIS [Suspect]
     Active Substance: BUDESONIDE
     Indication: EOSINOPHILIC COLITIS
     Route: 048
     Dates: start: 20150722
  19. ALBUTEROL. [Concomitant]
     Active Substance: ALBUTEROL
     Indication: PRODUCT USED FOR UNKNOWN INDICATION
     Route: 065
  20. AMLODIPINE [Concomitant]
     Active Substance: AMLODIPINE BESYLATE
     Indication: GASTROOESOPHAGEAL REFLUX DISEASE
  21. VITAMIN D3 [Concomitant]
     Active Substance: CHOLECALCIFEROL
     Indication: PRODUCT USED FOR UNKNOWN INDICATION
     Route: 065
  22. MESALAMINE CAPSULES [Concomitant]
     Indication: PRODUCT USED FOR UNKNOWN INDICATION
     Route: 065
  23. SIROLIMUS. [Concomitant]
     Active Substance: SIROLIMUS
     Indication: GASTROOESOPHAGEAL REFLUX DISEASE
  24. SULFAMETHOXAZOLE/TRIMETHOPRIM [Concomitant]
     Active Substance: SULFAMETHOXAZOLE\TRIMETHOPRIM
     Indication: GASTROOESOPHAGEAL REFLUX DISEASE
  25. AMLODIPINE [Concomitant]
     Active Substance: AMLODIPINE BESYLATE
     Indication: PRODUCT USED FOR UNKNOWN INDICATION
     Route: 065
  26. FLUOCINOLONE TOPICAL OIL [Concomitant]
     Indication: GASTROOESOPHAGEAL REFLUX DISEASE
  27. MESALAMINE CAPSULES [Concomitant]
     Indication: GASTROOESOPHAGEAL REFLUX DISEASE
  28. VITAMIN E [Concomitant]
     Active Substance: .ALPHA.-TOCOPHEROL
     Indication: PRODUCT USED FOR UNKNOWN INDICATION
     Route: 065
  29. PREVACID 24 HOURS [Concomitant]
     Indication: GASTROOESOPHAGEAL REFLUX DISEASE
     Route: 048
     Dates: start: 201512
  30. VITAMIN D3 [Concomitant]
     Active Substance: CHOLECALCIFEROL
     Indication: GASTROOESOPHAGEAL REFLUX DISEASE
  31. CYPROHEPTADINE. [Concomitant]
     Active Substance: CYPROHEPTADINE
     Indication: GASTROOESOPHAGEAL REFLUX DISEASE
  32. CREON CAPSULES [Concomitant]
     Indication: PRODUCT USED FOR UNKNOWN INDICATION
     Route: 065
  33. PREDNISONE SOLUTION [Concomitant]
     Indication: GASTROOESOPHAGEAL REFLUX DISEASE
  34. CYPROHEPTADINE. [Concomitant]
     Active Substance: CYPROHEPTADINE
     Indication: PRODUCT USED FOR UNKNOWN INDICATION
     Route: 065
  35. LIDOCAINE CREAM [Concomitant]
     Indication: GASTROOESOPHAGEAL REFLUX DISEASE
  36. URSODIOL. [Concomitant]
     Active Substance: URSODIOL
     Indication: GASTROOESOPHAGEAL REFLUX DISEASE
  37. VITAMIN A [Concomitant]
     Active Substance: VITAMIN A
     Indication: GASTROOESOPHAGEAL REFLUX DISEASE

REACTIONS (2)
  - Medication residue present [Unknown]
  - Drug ineffective [Unknown]
